FAERS Safety Report 22063163 (Version 1)
Quarter: 2023Q1

REPORT INFORMATION
  Report Type: Spontaneous
  Country: DE (occurrence: DE)
  Receive Date: 20230306
  Receipt Date: 20230306
  Transmission Date: 20230417
  Serious: Yes (Other)
  Sender: FDA-Public Use
  Company Number: DE-STRIDES ARCOLAB LIMITED-2023SP003100

PATIENT
  Age: 50 Year
  Sex: Male

DRUGS (4)
  1. FINGOLIMOD [Suspect]
     Active Substance: FINGOLIMOD
     Indication: Relapsing-remitting multiple sclerosis
     Dosage: UNK
     Route: 065
  2. TOZINAMERAN [Suspect]
     Active Substance: TOZINAMERAN
     Indication: COVID-19 immunisation
     Dosage: UNK, FIRST DOSE (SINGLE)
     Route: 065
     Dates: start: 20210515, end: 20210515
  3. TOZINAMERAN [Suspect]
     Active Substance: TOZINAMERAN
     Dosage: UNK, SECOND DOSE (SINGLE)
     Route: 065
     Dates: start: 20210605, end: 20210605
  4. ELASOMERAN [Suspect]
     Active Substance: ELASOMERAN
     Indication: COVID-19 immunisation
     Dosage: UNK, THIRD DOSE (SINGLE)
     Route: 065
     Dates: start: 20211104, end: 20211104

REACTIONS (2)
  - Immunodeficiency [Unknown]
  - Vaccination failure [Unknown]
